FAERS Safety Report 6470081-2 (Version None)
Quarter: 2009Q4

REPORT INFORMATION
  Report Type: 
  Country: None (occurrence: None)
  Receive Date: 20091203
  Receipt Date: 20091125
  Transmission Date: 20100525
  Serious: Yes (Other)
  Sender: FDA-Public Use
  Company Number: CA-JNJFOC-20091108218

PATIENT
  Sex: Female

DRUGS (5)
  1. MONISTAT 1 DAY TREATMENT [Suspect]
     Route: 067
     Dates: start: 20091123
  2. MONISTAT 1 DAY TREATMENT [Suspect]
     Indication: FUNGAL INFECTION
     Route: 067
     Dates: start: 20091123
  3. MONISTAT 1 DAY TREATMENT [Suspect]
     Route: 061
     Dates: start: 20091123
  4. MONISTAT 1 DAY TREATMENT [Suspect]
     Route: 061
     Dates: start: 20091123
  5. ALESSE [Suspect]
     Indication: DRUG USE FOR UNKNOWN INDICATION

REACTIONS (5)
  - ABDOMINAL PAIN [None]
  - SKIN EXFOLIATION [None]
  - VAGINAL HAEMORRHAGE [None]
  - VULVOVAGINAL BURNING SENSATION [None]
  - VULVOVAGINAL PAIN [None]
